FAERS Safety Report 24836292 (Version 1)
Quarter: 2025Q1

REPORT INFORMATION
  Report Type: Spontaneous
  Country: US (occurrence: US)
  Receive Date: 20250113
  Receipt Date: 20250113
  Transmission Date: 20250409
  Serious: No
  Sender: SUNOVION
  Company Number: US-SMPA-2024SPA006813AA

PATIENT

DRUGS (2)
  1. GEMTESA [Suspect]
     Active Substance: VIBEGRON
     Indication: Hypertonic bladder
     Dosage: 75 MG, QD
     Route: 048
     Dates: start: 202410
  2. TESTOSTERONE [Concomitant]
     Active Substance: TESTOSTERONE
     Indication: Hypothalamo-pituitary disorder
     Route: 065

REACTIONS (1)
  - Blood testosterone decreased [Unknown]
